FAERS Safety Report 24353218 (Version 1)
Quarter: 2024Q3

REPORT INFORMATION
  Report Type: Spontaneous
  Country: NL (occurrence: NL)
  Receive Date: 20240923
  Receipt Date: 20240923
  Transmission Date: 20241017
  Serious: No
  Sender: ROCHE
  Company Number: NL-ROCHE-3457598

PATIENT
  Age: 68 Year
  Sex: Female

DRUGS (2)
  1. HERCEPTIN [Suspect]
     Active Substance: TRASTUZUMAB
     Indication: Product used for unknown indication
     Route: 065
  2. ARIMIDEX [Concomitant]
     Active Substance: ANASTROZOLE

REACTIONS (1)
  - Cardiac disorder [Unknown]
